FAERS Safety Report 6166355-5 (Version None)
Quarter: 2009Q2

REPORT INFORMATION
  Report Type: 
  Country: None (occurrence: None)
  Receive Date: 20090424
  Receipt Date: 20090415
  Transmission Date: 20091009
  Serious: Yes (Hospitalization, Disabling)
  Sender: FDA-Public Use
  Company Number: CA-JNJFOC-20090306310

PATIENT
  Sex: Female
  Weight: 79 kg

DRUGS (15)
  1. REMICADE [Suspect]
     Indication: CROHN'S DISEASE
     Route: 042
  2. DILTIAZEM [Concomitant]
  3. METFORMIN HCL [Concomitant]
  4. ATENOLOL [Concomitant]
  5. NORVASC [Concomitant]
  6. MICARDIS [Concomitant]
  7. PRAVASTATIN [Concomitant]
  8. PANTALOC [Concomitant]
  9. COUMADIN [Concomitant]
  10. ACTONEL [Concomitant]
  11. OXYCONTIN [Concomitant]
  12. AMITRIPTLINE HYDROCHLORIDE TAB [Concomitant]
  13. TYLENOL W/ CODEINE NO. 3 [Concomitant]
  14. XATRAL [Concomitant]
  15. TEMAZEPAM [Concomitant]

REACTIONS (3)
  - ABDOMINAL PAIN [None]
  - HODGKIN'S DISEASE [None]
  - VOMITING [None]
